FAERS Safety Report 6655455-9 (Version None)
Quarter: 2010Q1

REPORT INFORMATION
  Report Type: 
  Country: None (occurrence: None)
  Receive Date: 20100329
  Receipt Date: 20100323
  Transmission Date: 20100710
  Serious: Yes (Other)
  Sender: FDA-Public Use
  Company Number: JP-PFIZER INC-2010038081

PATIENT
  Age: 68 Year
  Sex: Female

DRUGS (2)
  1. ATARAX [Suspect]
     Dosage: 25 MG, 1X/DAY
     Route: 030
  2. VOLTAREN [Concomitant]

REACTIONS (1)
  - BRADYCARDIA [None]
